FAERS Safety Report 23355694 (Version 3)
Quarter: 2024Q1

REPORT INFORMATION
  Report Type: Spontaneous
  Country: CN (occurrence: CN)
  Receive Date: 20240102
  Receipt Date: 20240223
  Transmission Date: 20240410
  Serious: Yes (Hospitalization)
  Sender: FDA-Public Use
  Company Number: CN-NOVOPROD-1157212

PATIENT
  Age: 60 Year
  Sex: Female
  Weight: 58 kg

DRUGS (1)
  1. INSULIN ASPART [Suspect]
     Active Substance: INSULIN ASPART
     Indication: Type 2 diabetes mellitus
     Dosage: 26 IU, BID(26 U IN THE MORNING AND 26 U IN THE EVENING.)(52)
     Route: 058

REACTIONS (5)
  - Myocardial ischaemia [Unknown]
  - Device failure [Unknown]
  - Blood glucose increased [Recovered/Resolved]
  - Injection site induration [Unknown]
  - Product storage error [Unknown]

NARRATIVE: CASE EVENT DATE: 20231223
